FAERS Safety Report 7134040-9 (Version None)
Quarter: 2010Q4

REPORT INFORMATION
  Report Type: 
  Country: None (occurrence: None)
  Receive Date: 20101117
  Receipt Date: 20101109
  Transmission Date: 20110411
  Serious: Yes (Hospitalization, Other)
  Sender: FDA-Public Use
  Company Number: WAES 1011ITA00001

PATIENT
  Age: 72 Year
  Sex: Male

DRUGS (7)
  1. CAP VORINOSTAT [Suspect]
     Indication: NEOPLASM MALIGNANT
     Dosage: 400 MG/DAILY, PO
     Route: 048
     Dates: start: 20100916, end: 20101014
  2. ALLOPURINOL [Concomitant]
  3. BARNIDIPINE [Concomitant]
  4. EZETIMIBE/SIMVASTATIN [Concomitant]
  5. FLUCONAZOLE [Concomitant]
  6. INSULIN [Concomitant]
  7. PREDNISONE [Concomitant]

REACTIONS (3)
  - PNEUMOCOCCAL INFECTION [None]
  - SKIN BACTERIAL INFECTION [None]
  - STAPHYLOCOCCAL SKIN INFECTION [None]
